FAERS Safety Report 14723183 (Version 1)
Quarter: 2018Q2

REPORT INFORMATION
  Report Type: Spontaneous
  Country: US (occurrence: US)
  Receive Date: 20180405
  Receipt Date: 20180405
  Transmission Date: 20180711
  Serious: Yes (Hospitalization)
  Sender: FDA-Public Use
  Company Number: US-FRESENIUS KABI-FK201804096

PATIENT
  Age: 75 Year
  Sex: Female

DRUGS (1)
  1. VANCOMYCIN (MANUFACTURER UNKNOWN) [Suspect]
     Active Substance: VANCOMYCIN
     Indication: PRODUCT USED FOR UNKNOWN INDICATION

REACTIONS (3)
  - Product use issue [Recovered/Resolved with Sequelae]
  - Retinal haemorrhage [Recovered/Resolved with Sequelae]
  - Retinal vasculitis [Recovered/Resolved with Sequelae]
